FAERS Safety Report 8401585-0 (Version None)
Quarter: 2012Q2

REPORT INFORMATION
  Report Type: 
  Country: None (occurrence: None)
  Receive Date: 20120525
  Receipt Date: 20120522
  Transmission Date: 20120825
  Serious: Yes (Death)
  Sender: FDA-Public Use
  Company Number: 2012SP027247

PATIENT
  Sex: Female

DRUGS (10)
  1. ROCURONIUM BROMIDE [Suspect]
     Indication: RESPIRATORY DISORDER
     Dosage: 50 MG;IV ; 530 MG;IV ; 500 MG;IV ; 500 MG;IV ; 500 MG;IV
     Route: 042
     Dates: start: 20111021, end: 20111021
  2. ROCURONIUM BROMIDE [Suspect]
     Indication: MUSCLE RELAXANT THERAPY
     Dosage: 50 MG;IV ; 530 MG;IV ; 500 MG;IV ; 500 MG;IV ; 500 MG;IV
     Route: 042
     Dates: start: 20111021, end: 20111021
  3. ROCURONIUM BROMIDE [Suspect]
     Indication: RESPIRATORY DISORDER
     Dosage: 50 MG;IV ; 530 MG;IV ; 500 MG;IV ; 500 MG;IV ; 500 MG;IV
     Route: 042
     Dates: start: 20111001, end: 20111001
  4. ROCURONIUM BROMIDE [Suspect]
     Indication: MUSCLE RELAXANT THERAPY
     Dosage: 50 MG;IV ; 530 MG;IV ; 500 MG;IV ; 500 MG;IV ; 500 MG;IV
     Route: 042
     Dates: start: 20111001, end: 20111001
  5. ROCURONIUM BROMIDE [Suspect]
     Indication: RESPIRATORY DISORDER
     Dosage: 50 MG;IV ; 530 MG;IV ; 500 MG;IV ; 500 MG;IV ; 500 MG;IV
     Route: 042
     Dates: start: 20111021, end: 20111021
  6. ROCURONIUM BROMIDE [Suspect]
     Indication: MUSCLE RELAXANT THERAPY
     Dosage: 50 MG;IV ; 530 MG;IV ; 500 MG;IV ; 500 MG;IV ; 500 MG;IV
     Route: 042
     Dates: start: 20111021, end: 20111021
  7. ROCURONIUM BROMIDE [Suspect]
     Indication: RESPIRATORY DISORDER
     Dosage: 50 MG;IV ; 530 MG;IV ; 500 MG;IV ; 500 MG;IV ; 500 MG;IV
     Route: 042
     Dates: start: 20111018, end: 20111018
  8. ROCURONIUM BROMIDE [Suspect]
     Indication: MUSCLE RELAXANT THERAPY
     Dosage: 50 MG;IV ; 530 MG;IV ; 500 MG;IV ; 500 MG;IV ; 500 MG;IV
     Route: 042
     Dates: start: 20111018, end: 20111018
  9. ROCURONIUM BROMIDE [Suspect]
     Indication: RESPIRATORY DISORDER
     Dosage: 50 MG;IV ; 530 MG;IV ; 500 MG;IV ; 500 MG;IV ; 500 MG;IV
     Route: 042
     Dates: start: 20111019, end: 20111019
  10. ROCURONIUM BROMIDE [Suspect]
     Indication: MUSCLE RELAXANT THERAPY
     Dosage: 50 MG;IV ; 530 MG;IV ; 500 MG;IV ; 500 MG;IV ; 500 MG;IV
     Route: 042
     Dates: start: 20111019, end: 20111019

REACTIONS (1)
  - DEATH [None]
